FAERS Safety Report 20561519 (Version 7)
Quarter: 2023Q4

REPORT INFORMATION
  Report Type: Other
  Country: IT (occurrence: None)
  Receive Date: 20220307
  Receipt Date: 20231013
  Transmission Date: 20240110
  Serious: Yes (Other)
  Sender: FDA-Public Use
  Company Number: IT-ROCHE-3025009

PATIENT
  Age: 51 Year
  Sex: Male

DRUGS (6)
  1. OBINUTUZUMAB [Suspect]
     Active Substance: OBINUTUZUMAB
     Indication: Follicular lymphoma
     Dosage: NUMBER OF CYCLES RECEIVED: 2, ON 07/OCT/2020 LAST ADMINISTRATION OF  OBINUTUZUMAB BEFORE AE.
     Route: 042
     Dates: start: 20200804, end: 20230130
  2. OBINUTUZUMAB [Suspect]
     Active Substance: OBINUTUZUMAB
     Route: 042
     Dates: start: 20200813
  3. CYCLOPHOSPHAMIDE [Suspect]
     Active Substance: CYCLOPHOSPHAMIDE
     Indication: Follicular lymphoma
     Dosage: ON 07/OCT/2020 LAST ADMINISTRATION OF  CYCLOPHOSPHAMIDE BEFORE AE.
     Route: 065
     Dates: start: 20200804, end: 20230130
  4. DOXORUBICIN [Suspect]
     Active Substance: DOXORUBICIN
     Indication: Follicular lymphoma
     Dosage: ON 07/OCT/2020 LAST ADMINISTRATION OF  DOXORUBICIN BEFORE AE.
     Route: 065
     Dates: start: 20200804, end: 20230130
  5. PREDNISOLONE [Suspect]
     Active Substance: PREDNISOLONE
     Indication: Follicular lymphoma
     Dosage: ON 07/OCT/2020 LAST ADMINISTRATION OF  PREDNISOLONE BEFORE AE.
     Route: 065
     Dates: start: 20200804, end: 20230130
  6. VINCRISTINE [Suspect]
     Active Substance: VINCRISTINE
     Indication: Follicular lymphoma
     Dosage: ON 07/OCT/2020 LAST ADMINISTRATION OF  VINCRISTINE BEFORE AE.
     Route: 065
     Dates: start: 20200804, end: 20230130

REACTIONS (2)
  - Venous thrombosis [Recovered/Resolved]
  - Pulmonary embolism [Recovered/Resolved]

NARRATIVE: CASE EVENT DATE: 20201028
